FAERS Safety Report 9274808 (Version 5)
Quarter: 2013Q4

REPORT INFORMATION
  Report Type: Spontaneous
  Country: US (occurrence: US)
  Receive Date: 20130507
  Receipt Date: 20131128
  Transmission Date: 20140711
  Serious: Yes (Other)
  Sender: FDA-Public Use
  Company Number: US-JNJFOC-20130501964

PATIENT
  Sex: Female

DRUGS (17)
  1. TOPAMAX [Suspect]
     Indication: MIGRAINE
     Route: 048
     Dates: start: 200601, end: 200604
  2. TOPAMAX [Suspect]
     Indication: CONVULSION
     Route: 048
     Dates: start: 200601, end: 200604
  3. METHADONE [Suspect]
     Indication: MIGRAINE
     Route: 048
  4. METHADONE [Suspect]
     Indication: ASTROCYTOMA
     Route: 048
  5. METHADONE [Suspect]
     Indication: BRAIN NEOPLASM
     Route: 048
  6. MEPERIDINE [Suspect]
     Indication: PAIN
     Route: 048
  7. COLACE [Suspect]
     Indication: PRODUCT USED FOR UNKNOWN INDICATION
     Route: 048
  8. ZANTAC [Suspect]
     Indication: PRODUCT USED FOR UNKNOWN INDICATION
     Route: 048
  9. DOXYCYCLINE [Suspect]
     Indication: PRODUCT USED FOR UNKNOWN INDICATION
     Route: 048
  10. CELEXA [Suspect]
     Indication: DEPRESSION
     Route: 048
  11. WELLBUTRIN [Suspect]
     Indication: DEPRESSION
     Route: 048
  12. KEPPRA [Suspect]
     Indication: CONVULSION
     Route: 048
  13. ADVAIR INHALER [Suspect]
     Indication: ASTHMA
     Route: 055
  14. ALBUTEROL [Suspect]
     Indication: ASTHMA
     Route: 055
  15. HYDROXYZINE [Suspect]
     Indication: ANXIETY
     Route: 065
  16. ENDOCET [Suspect]
     Indication: PAIN
     Route: 065
  17. PRENATAL VITAMIN [Concomitant]
     Route: 065

REACTIONS (3)
  - Arrested labour [Recovered/Resolved]
  - Exposure during pregnancy [Recovered/Resolved]
  - Depression [Unknown]
